FAERS Safety Report 5337169-0 (Version None)
Quarter: 2007Q2

REPORT INFORMATION
  Report Type: 
  Country: None (occurrence: None)
  Receive Date: 20070529
  Receipt Date: 20070517
  Transmission Date: 20071010
  Serious: Yes (Hospitalization)
  Sender: FDA-Public Use
  Company Number: JP-PFIZER INC-2007036728

PATIENT
  Sex: Male

DRUGS (7)
  1. MIGLITOL TABLET [Suspect]
     Indication: DIABETES MELLITUS NON-INSULIN-DEPENDENT
     Dosage: DAILY DOSE:225MG
     Route: 048
  2. GASTER [Concomitant]
     Indication: DUODENAL ULCER
     Dosage: DAILY DOSE:20MG
     Route: 048
  3. EUGLUCON [Concomitant]
     Indication: DIABETES MELLITUS NON-INSULIN-DEPENDENT
     Dosage: DAILY DOSE:8.75MG
     Route: 048
     Dates: start: 19910101
  4. TRIMEBUTINE MALEATE [Concomitant]
     Indication: ENTEROCOLITIS
     Dosage: DAILY DOSE:300MG
     Route: 048
     Dates: start: 19890101
  5. MECOBALAMIN [Concomitant]
     Indication: DIABETIC NEUROPATHY
     Dosage: DAILY DOSE:1.5MG
     Route: 048
     Dates: start: 20010101
  6. MAGNESIUM OXIDE [Concomitant]
     Indication: ENTEROCOLITIS
     Dosage: DAILY DOSE:990MG
     Route: 048
     Dates: start: 20070418, end: 20070508
  7. GASMOTIN [Concomitant]
     Indication: ENTEROCOLITIS
     Route: 048

REACTIONS (3)
  - ILEUS [None]
  - PERITONITIS [None]
  - VOMITING [None]
